FAERS Safety Report 7409649-5 (Version None)
Quarter: 2011Q2

REPORT INFORMATION
  Report Type: 
  Country: None (occurrence: None)
  Receive Date: 20110412
  Receipt Date: 20110404
  Transmission Date: 20111010
  Serious: Yes (Life-Threatening, Other)
  Sender: FDA-Public Use
  Company Number: JP-ASTRAZENECA-2011SE20043

PATIENT
  Age: 81 Year
  Sex: Male

DRUGS (1)
  1. MEROPEN [Suspect]
     Indication: NEOPLASM
     Route: 042
     Dates: start: 20110303, end: 20110325

REACTIONS (2)
  - LUNG DISORDER [None]
  - NEUTROPHIL COUNT DECREASED [None]
